FAERS Safety Report 15482763 (Version 1)
Quarter: 2018Q4

REPORT INFORMATION
  Report Type: Spontaneous
  Country: US (occurrence: US)
  Receive Date: 20181010
  Receipt Date: 20181010
  Transmission Date: 20190205
  Serious: No
  Sender: FDA-Public Use
  Company Number: US-BAYER-2018-189257

PATIENT
  Age: 82 Year
  Sex: Female

DRUGS (2)
  1. CLIMARA [Suspect]
     Active Substance: ESTRADIOL
     Route: 062
  2. CLIMARA [Suspect]
     Active Substance: ESTRADIOL
     Route: 062

REACTIONS (4)
  - Product adhesion issue [None]
  - Patient dissatisfaction with treatment [None]
  - Product adhesion issue [None]
  - Patient dissatisfaction with treatment [None]

NARRATIVE: CASE EVENT DATE: 201810
